FAERS Safety Report 13589521 (Version 2)
Quarter: 2017Q2

REPORT INFORMATION
  Report Type: Report from Study
  Country: DE (occurrence: DE)
  Receive Date: 20170530
  Receipt Date: 20170620
  Transmission Date: 20170830
  Serious: Yes (Hospitalization)
  Sender: FDA-Public Use
  Company Number: DE-DRREDDYS-GER/GER/17/0091047

PATIENT
  Age: 65 Year
  Sex: Male

DRUGS (6)
  1. ZOLEDRONSAEURE BETA 4 MG/5 ML KONZENTRAT ZUR HERSTELLUNG EINER INFUSIO [Suspect]
     Active Substance: ZOLEDRONIC ACID
     Route: 042
     Dates: start: 20150211, end: 20150211
  2. ZOLEDRONSAEURE BETA 4 MG/5 ML KONZENTRAT ZUR HERSTELLUNG EINER INFUSIO [Suspect]
     Active Substance: ZOLEDRONIC ACID
     Route: 042
     Dates: start: 20150812, end: 20150812
  3. BICALUTAMID [Concomitant]
     Active Substance: BICALUTAMIDE
     Indication: PROSTATE CANCER
     Route: 048
     Dates: start: 20140801
  4. LEUPRORELIN ACETAT (1:X) [Concomitant]
     Indication: PROSTATE CANCER
     Route: 058
     Dates: start: 20141001
  5. ZOLEDRONSAEURE BETA 4 MG/5 ML KONZENTRAT ZUR HERSTELLUNG EINER INFUSIO [Suspect]
     Active Substance: ZOLEDRONIC ACID
     Indication: PROSTATE CANCER
     Route: 042
     Dates: start: 20141023, end: 20141023
  6. LEUPRORELIN ACETAT (1:X) [Concomitant]
     Route: 058

REACTIONS (3)
  - Hydronephrosis [Not Recovered/Not Resolved]
  - Renal function test abnormal [Recovered/Resolved]
  - Nephropathy toxic [None]

NARRATIVE: CASE EVENT DATE: 20141023
